FAERS Safety Report 7046325-5 (Version None)
Quarter: 2010Q4

REPORT INFORMATION
  Report Type: 
  Country: None (occurrence: None)
  Receive Date: 20101014
  Receipt Date: 20101007
  Transmission Date: 20110411
  Serious: Yes (Congenital Anomaly, Other)
  Sender: FDA-Public Use
  Company Number: US-PFIZER INC-2010126163

PATIENT
  Age: 26 Month
  Sex: Male

DRUGS (4)
  1. LISINOPRIL [Suspect]
     Route: 064
  2. METOPROLOL TARTRATE [Suspect]
     Route: 064
  3. NITROGLYCERIN [Suspect]
     Route: 064
  4. DIGOXIN [Suspect]
     Route: 064

REACTIONS (7)
  - ALOPECIA [None]
  - ARACHNOID CYST [None]
  - DERMOID CYST [None]
  - DRUG EXPOSURE DURING PREGNANCY [None]
  - DYSMORPHISM [None]
  - MORNING GLORY SYNDROME [None]
  - STRABISMUS [None]
